FAERS Safety Report 10700368 (Version 1)
Quarter: 2015Q1

REPORT INFORMATION
  Report Type: Spontaneous
  Country: SE (occurrence: SE)
  Receive Date: 20150109
  Receipt Date: 20150109
  Transmission Date: 20150721
  Serious: Yes (Hospitalization)
  Sender: FDA-Public Use
  Company Number: SE-ABBVIE-15P-150-1330494-00

PATIENT
  Age: 61 Year
  Sex: Male

DRUGS (8)
  1. ATARAX [Suspect]
     Active Substance: HYDROXYZINE\HYDROXYZINE HYDROCHLORIDE
     Indication: SUICIDE ATTEMPT
     Route: 048
     Dates: start: 20131207, end: 20131207
  2. ERGENYL [Suspect]
     Active Substance: VALPROIC ACID
     Indication: SUICIDE ATTEMPT
     Route: 048
     Dates: start: 20131207, end: 20131207
  3. RISPERIDONE. [Suspect]
     Active Substance: RISPERIDONE
     Indication: SUICIDE ATTEMPT
     Route: 048
     Dates: start: 20131207, end: 20131207
  4. CLOMIPRAMINE [Suspect]
     Active Substance: CLOMIPRAMINE
     Indication: SUICIDE ATTEMPT
     Route: 048
     Dates: start: 20131207, end: 20131207
  5. STESOLID [Suspect]
     Active Substance: DIAZEPAM
     Indication: SUICIDE ATTEMPT
     Route: 048
     Dates: start: 20131207, end: 20131207
  6. LEVAXIN [Suspect]
     Active Substance: LEVOTHYROXINE SODIUM
     Indication: SUICIDE ATTEMPT
     Route: 048
     Dates: start: 20131207, end: 20131207
  7. LITHIONIT [Suspect]
     Active Substance: LITHIUM SULFATE
     Indication: SUICIDE ATTEMPT
     Route: 048
     Dates: start: 20131207, end: 20131207
  8. TRUXAL [Suspect]
     Active Substance: CHLORPROTHIXENE
     Indication: SUICIDE ATTEMPT
     Route: 048
     Dates: start: 20131207, end: 20131207

REACTIONS (2)
  - Toxicity to various agents [Recovered/Resolved]
  - Suicidal ideation [Recovered/Resolved]

NARRATIVE: CASE EVENT DATE: 20131207
